FAERS Safety Report 17110798 (Version 1)
Quarter: 2019Q4

REPORT INFORMATION
  Report Type: Spontaneous
  Country: US (occurrence: US)
  Receive Date: 20191108
  Receipt Date: 20191108
  Transmission Date: 20200122
  Serious: Yes (Hospitalization)
  Sender: FDA-Public Use
  Company Number: None

PATIENT
  Age: 74 Year
  Sex: Male
  Weight: 70 kg

DRUGS (3)
  1. BUPROPION. [Suspect]
     Active Substance: BUPROPION
  2. METHYLPHENIDATE. [Suspect]
     Active Substance: METHYLPHENIDATE
     Indication: DEPRESSION
     Route: 048
     Dates: start: 20190123, end: 20190125
  3. BUPROPION. [Suspect]
     Active Substance: BUPROPION
     Indication: DEPRESSION
     Route: 048
     Dates: start: 20190116, end: 20190125

REACTIONS (1)
  - Hypertension [None]

NARRATIVE: CASE EVENT DATE: 20190125
